FAERS Safety Report 14679952 (Version 1)
Quarter: 2018Q1

REPORT INFORMATION
  Report Type: Spontaneous
  Country: CN (occurrence: CN)
  Receive Date: 20180326
  Receipt Date: 20180326
  Transmission Date: 20180509
  Serious: Yes (Hospitalization, Other)
  Sender: FDA-Public Use
  Company Number: CN-BAYER-2018-050815

PATIENT
  Age: 41 Year
  Sex: Male

DRUGS (1)
  1. STIVARGA [Suspect]
     Active Substance: REGORAFENIB
     Indication: COLON CANCER
     Dosage: 160 MG, QD
     Route: 048
     Dates: start: 20170731

REACTIONS (10)
  - Metastases to liver [None]
  - Metastases to liver [None]
  - Pulmonary fibrosis [None]
  - Hepatic cyst [None]
  - Renal cyst [None]
  - Cystic lung disease [None]
  - Tumour embolism [None]
  - Stomatitis [None]
  - Metastases to adrenals [None]
  - Palmar-plantar erythrodysaesthesia syndrome [None]

NARRATIVE: CASE EVENT DATE: 20170925
